FAERS Safety Report 19822776 (Version 2)
Quarter: 2022Q1

REPORT INFORMATION
  Report Type: Spontaneous
  Country: CA (occurrence: CA)
  Receive Date: 20210913
  Receipt Date: 20220120
  Transmission Date: 20220423
  Serious: Yes (Other)
  Sender: FDA-Public Use
  Company Number: CA-SA-SAC20210907001088

PATIENT
  Age: 54 Year
  Sex: Female

DRUGS (2)
  1. DOCETAXEL [Suspect]
     Active Substance: DOCETAXEL
     Indication: Uterine cancer
     Dosage: UNK
     Route: 042
  2. GEMCITABINE [Concomitant]
     Active Substance: GEMCITABINE
     Indication: Uterine cancer
     Dosage: UNK

REACTIONS (8)
  - Dermatitis bullous [Unknown]
  - Chest discomfort [Unknown]
  - Urticaria [Unknown]
  - Neutropenia [Unknown]
  - Dyspnoea exertional [Unknown]
  - Feeling hot [Unknown]
  - Erythema [Unknown]
  - Flushing [Unknown]
